FAERS Safety Report 8028834-5 (Version None)
Quarter: 2012Q1

REPORT INFORMATION
  Report Type: 
  Country: None (occurrence: None)
  Receive Date: 20120106
  Receipt Date: 20120104
  Transmission Date: 20120608
  Serious: Yes (Hospitalization)
  Sender: FDA-Public Use
  Company Number: US-JNJFOC-20120101246

PATIENT
  Sex: Male

DRUGS (1)
  1. STELARA [Suspect]
     Indication: PSORIASIS
     Dosage: TOTAL OF 9 INJECTIONS
     Route: 058

REACTIONS (1)
  - LIVER FUNCTION TEST ABNORMAL [None]
